FAERS Safety Report 5216768-0 (Version None)
Quarter: 2007Q1

REPORT INFORMATION
  Report Type: 
  Country: None (occurrence: None)
  Receive Date: 20070118
  Receipt Date: 20070105
  Transmission Date: 20070707
  Serious: Yes (Life-Threatening, Hospitalization)
  Sender: FDA-Public Use
  Company Number: 2006RR-04576

PATIENT
  Age: 30 Year
  Sex: Female

DRUGS (4)
  1. NAPROXEN [Suspect]
     Indication: DRUG USE FOR UNKNOWN INDICATION
     Dosage: ORAL
     Route: 048
  2. IBUPROFEN [Suspect]
     Indication: DRUG USE FOR UNKNOWN INDICATION
     Dosage: ORAL
     Route: 048
  3. CELECOXIB(CELECOXIB) 400MG [Suspect]
     Indication: DRUG USE FOR UNKNOWN INDICATION
     Dosage: 400 MG
  4. ASPIRIN [Suspect]
     Dosage: 188 MG

REACTIONS (12)
  - ABDOMINAL DISCOMFORT [None]
  - ERYTHEMA MULTIFORME [None]
  - FLUSHING [None]
  - FORCED EXPIRATORY VOLUME DECREASED [None]
  - HEART RATE INCREASED [None]
  - HYPERSENSITIVITY [None]
  - NASAL DISCOMFORT [None]
  - PHARYNGEAL OEDEMA [None]
  - PULMONARY OEDEMA [None]
  - RASH [None]
  - SHOCK [None]
  - THROAT IRRITATION [None]
